FAERS Safety Report 6728191-8 (Version None)
Quarter: 2010Q2

REPORT INFORMATION
  Report Type: 
  Country: None (occurrence: None)
  Receive Date: 20100517
  Receipt Date: 20100507
  Transmission Date: 20101027
  Serious: Yes (Other)
  Sender: FDA-Public Use
  Company Number: B0652068A

PATIENT
  Sex: Female
  Weight: 51 kg

DRUGS (4)
  1. TYKERB [Suspect]
     Indication: BREAST CANCER
     Dosage: 1250MG PER DAY
     Route: 048
     Dates: start: 20090924, end: 20100311
  2. XELODA [Suspect]
     Indication: DRUG USE FOR UNKNOWN INDICATION
     Route: 048
     Dates: start: 20090924, end: 20100311
  3. FEMARA [Concomitant]
     Route: 048
     Dates: start: 20090723
  4. UNKNOWN DRUG [Concomitant]
     Route: 065
     Dates: start: 20071017

REACTIONS (1)
  - SKIN ULCER [None]
